FAERS Safety Report 12863042 (Version 2)
Quarter: 2016Q4

REPORT INFORMATION
  Report Type: Report from Study
  Country: DE (occurrence: DE)
  Receive Date: 20161019
  Receipt Date: 20161110
  Transmission Date: 20170207
  Serious: Yes (Hospitalization, Other)
  Sender: FDA-Public Use
  Company Number: PHHO2015DE017962

PATIENT
  Age: 76 Year
  Sex: Female
  Weight: 56 kg

DRUGS (2)
  1. TOPOTECAN HYDROCHLORIDE. [Suspect]
     Active Substance: TOPOTECAN HYDROCHLORIDE
     Indication: OVARIAN CANCER RECURRENT
     Dosage: 4.74 MG, QW
     Route: 042
     Dates: start: 20150714, end: 20150804
  2. PAZOPANIB [Suspect]
     Active Substance: PAZOPANIB
     Indication: OVARIAN CANCER RECURRENT
     Dosage: 400 MG, QD
     Route: 048
     Dates: start: 20150714, end: 20150804

REACTIONS (2)
  - Nervous system disorder [Not Recovered/Not Resolved]
  - Secondary cerebellar degeneration [Recovered/Resolved]

NARRATIVE: CASE EVENT DATE: 20150814
